FAERS Safety Report 16420206 (Version 2)
Quarter: 2019Q2

REPORT INFORMATION
  Report Type: Spontaneous
  Country: US (occurrence: US)
  Receive Date: 20190612
  Receipt Date: 20190618
  Transmission Date: 20190711
  Serious: Yes (Hospitalization)
  Sender: FDA-Public Use
  Company Number: US-HORIZON-RAV-0174-2019

PATIENT
  Age: 35 Year
  Sex: Female

DRUGS (1)
  1. RAVICTI [Suspect]
     Active Substance: GLYCEROL PHENYLBUTYRATE
     Indication: ORNITHINE TRANSCARBAMOYLASE DEFICIENCY
     Dosage: 1 ML (1.1 G/ML) BY MOUTH 3 TIMES DAILY
     Route: 048
     Dates: start: 20150622

REACTIONS (2)
  - Treatment noncompliance [Unknown]
  - Ammonia increased [Unknown]

NARRATIVE: CASE EVENT DATE: 201906
